FAERS Safety Report 4851371-3 (Version None)
Quarter: 2005Q4

REPORT INFORMATION
  Report Type: 
  Country: None (occurrence: None)
  Receive Date: 20051212
  Receipt Date: 20051129
  Transmission Date: 20060501
  Serious: Yes (Other)
  Sender: FDA-Public Use
  Company Number: PHBS2005GR17771

PATIENT
  Age: 9 Year

DRUGS (3)
  1. ZIRTEC [Concomitant]
  2. PULMICORT [Concomitant]
     Route: 045
  3. FORADIL [Suspect]
     Dosage: UNK, BID

REACTIONS (1)
  - SYNCOPE [None]
